FAERS Safety Report 6749500-X (Version None)
Quarter: 2010Q2

REPORT INFORMATION
  Report Type: 
  Country: None (occurrence: None)
  Receive Date: 20100601
  Receipt Date: 20100519
  Transmission Date: 20101027
  Serious: Yes (Hospitalization)
  Sender: FDA-Public Use
  Company Number: FR-SANOFI-AVENTIS-2010SA028857

PATIENT
  Age: 76 Year
  Sex: Female

DRUGS (6)
  1. LOVENOX [Suspect]
     Indication: THROMBOSIS PROPHYLAXIS
     Route: 058
     Dates: start: 20100211
  2. LORAZEPAM [Suspect]
     Indication: INSOMNIA
     Route: 048
     Dates: start: 20091201
  3. DIFFU K [Suspect]
     Route: 048
     Dates: start: 20100208, end: 20100217
  4. NEURONTIN [Suspect]
     Indication: PAIN
     Route: 048
     Dates: end: 20100217
  5. DURAGESIC-100 [Suspect]
     Indication: PAIN
     Route: 062
     Dates: start: 20100214, end: 20100216
  6. PANTOPRAZOLE SODIUM [Suspect]
     Route: 048
     Dates: start: 20100207, end: 20100217

REACTIONS (3)
  - ORAL DISCOMFORT [None]
  - PRURITUS [None]
  - RASH MACULO-PAPULAR [None]
